FAERS Safety Report 5775047-3 (Version None)
Quarter: 2008Q2

REPORT INFORMATION
  Report Type: 
  Country: None (occurrence: None)
  Receive Date: 20080617
  Receipt Date: 20080617
  Transmission Date: 20081010
  Serious: Yes (Life-Threatening)
  Sender: FDA-Public Use
  Company Number: None

PATIENT
  Age: 63 Year
  Sex: Male
  Weight: 69 kg

DRUGS (8)
  1. HEPARIN [Suspect]
     Dosage: 20,000 UNITS OTO IV
     Route: 042
     Dates: start: 20080425
  2. ZANTAC [Concomitant]
  3. ASPIRIN [Concomitant]
  4. LIPITOR [Concomitant]
  5. VANCOMYCIN [Concomitant]
  6. CEFEPIME [Concomitant]
  7. FLAGYL [Concomitant]
  8. FLUCONAZOLE [Concomitant]

REACTIONS (5)
  - ARTERIAL THROMBOSIS LIMB [None]
  - PERIPHERAL COLDNESS [None]
  - PLATELET COUNT DECREASED [None]
  - RENAL ARTERY THROMBOSIS [None]
  - THROMBOSIS [None]
